FAERS Safety Report 6044106-2 (Version None)
Quarter: 2009Q1

REPORT INFORMATION
  Report Type: 
  Country: None (occurrence: None)
  Receive Date: 20090120
  Receipt Date: 20090113
  Transmission Date: 20090719
  Serious: Yes (Hospitalization)
  Sender: FDA-Public Use
  Company Number: GR-ASTRAZENECA-2009SE00326

PATIENT
  Age: 36 Year
  Sex: Female

DRUGS (2)
  1. SEROQUEL XR [Suspect]
     Indication: DELUSIONAL DISORDER, UNSPECIFIED TYPE
     Route: 048
     Dates: start: 20090101, end: 20090104
  2. AKINETON [Concomitant]
     Route: 048

REACTIONS (3)
  - CONVULSION [None]
  - RESTLESSNESS [None]
  - SLEEP DISORDER [None]
